FAERS Safety Report 25614488 (Version 1)
Quarter: 2025Q3

REPORT INFORMATION
  Report Type: Other
  Country: IR (occurrence: IR)
  Receive Date: 20250729
  Receipt Date: 20250729
  Transmission Date: 20251020
  Serious: Yes (Death, Hospitalization)
  Sender: ANI
  Company Number: IR-ANIPHARMA-023747

PATIENT
  Age: 30 Year
  Sex: Female

DRUGS (8)
  1. VANCOMYCIN [Suspect]
     Active Substance: VANCOMYCIN
     Indication: Prosthetic valve endocarditis
  2. LEVOTHYROXINE [Suspect]
     Active Substance: LEVOTHYROXINE
     Indication: Hypothyroidism
  3. DEXAMETHASONE [Concomitant]
     Active Substance: DEXAMETHASONE
     Indication: Product used for unknown indication
  4. FERRIC CARBOXYMALTOSE [Concomitant]
     Active Substance: FERRIC CARBOXYMALTOSE
     Indication: Anaemia
  5. MEROPENEM [Concomitant]
     Active Substance: MEROPENEM
     Indication: Prosthetic valve endocarditis
  6. AMPHOTERICIN B [Concomitant]
     Active Substance: AMPHOTERICIN B
     Indication: Evidence based treatment
  7. VANCOMYCIN [Suspect]
     Active Substance: VANCOMYCIN
     Indication: Prosthetic valve endocarditis
  8. MEROPENEM [Concomitant]
     Active Substance: MEROPENEM
     Indication: Prosthetic valve endocarditis

REACTIONS (2)
  - Drug ineffective [Fatal]
  - Treatment noncompliance [Unknown]
